FAERS Safety Report 4618317-4 (Version None)
Quarter: 2005Q1

REPORT INFORMATION
  Report Type: 
  Country: None (occurrence: None)
  Receive Date: 20050323
  Receipt Date: 20050307
  Transmission Date: 20050727
  Serious: Yes (Hospitalization)
  Sender: FDA-Public Use
  Company Number: 2005EU000446

PATIENT
  Age: 6 Month
  Sex: Male

DRUGS (1)
  1. PROGRAF [Suspect]
     Indication: LIVER TRANSPLANT
     Dosage: UNKNOWN/D

REACTIONS (5)
  - GASTROENTERITIS ROTAVIRUS [None]
  - HEPATIC ARTERY THROMBOSIS [None]
  - IMMUNOSUPPRESSANT DRUG LEVEL INCREASED [None]
  - PROCEDURAL COMPLICATION [None]
  - TRANSAMINASES INCREASED [None]
